FAERS Safety Report 14030481 (Version 1)
Quarter: 2017Q4

REPORT INFORMATION
  Report Type: Spontaneous
  Country: US (occurrence: US)
  Receive Date: 20171002
  Receipt Date: 20171002
  Transmission Date: 20180321
  Serious: No
  Sender: FDA-Public Use
  Company Number: US-MAYNE PHARMA-2016MYN002271

PATIENT
  Sex: Female

DRUGS (2)
  1. FENTANYL. [Suspect]
     Active Substance: FENTANYL
     Indication: PAIN MANAGEMENT
     Dosage: 1 PATCH, EVERY 72 HOURS
     Route: 062
     Dates: start: 2015
  2. NORTRIPTYLINE [Concomitant]
     Active Substance: NORTRIPTYLINE
     Indication: SLEEP DISORDER
     Dosage: 2 DF, OD
     Route: 048

REACTIONS (3)
  - Product adhesion issue [Unknown]
  - Drug ineffective [Not Recovered/Not Resolved]
  - Ear pain [Unknown]

NARRATIVE: CASE EVENT DATE: 2016
